FAERS Safety Report 8925858 (Version 1)
Quarter: 2012Q4

REPORT INFORMATION
  Report Type: 
  Country: US (occurrence: US)
  Receive Date: 20121126
  Receipt Date: 20121126
  Transmission Date: 20130627
  Serious: Yes (Other)
  Sender: FDA-Public Use
  Company Number: US-ASTRAZENECA-2012SE81340

PATIENT
  Age: 53 Year
  Sex: Male

DRUGS (2)
  1. CRESTOR [Suspect]
     Route: 048
  2. SYMBICORT PMDI [Suspect]
     Dosage: ON UNKNOWN FREQUENCY
     Route: 055

REACTIONS (5)
  - Renal failure acute [Unknown]
  - Vomiting [Unknown]
  - Hypotension [Unknown]
  - Sinusitis [Unknown]
  - Drug dose omission [Unknown]
